FAERS Safety Report 4426387-1 (Version None)
Quarter: 2004Q3

REPORT INFORMATION
  Report Type: 
  Country: None (occurrence: None)
  Receive Date: 20040811
  Receipt Date: 20040726
  Transmission Date: 20050211
  Serious: Yes (Other)
  Sender: FDA-Public Use
  Company Number: B0334619A

PATIENT
  Age: 20 Year
  Sex: Female
  Weight: 69.8539 kg

DRUGS (4)
  1. NICODERM CQ [Suspect]
     Indication: SMOKING CESSATION THERAPY
     Dosage: 21 MG / PER DAY / TRANSDERMAL
     Route: 062
     Dates: start: 20040319, end: 20040430
  2. PROPRANOLOL HYDROCHLORIDE (FORMULATION UNKNOWN) (PROPANOLOL HYDROCHLOR [Suspect]
     Indication: MIGRAINE
     Dosage: 40 MG / TWICE PER DAY / ORAL
     Route: 048
     Dates: start: 20040201
  3. ACETAMINOPHEN [Concomitant]
  4. MEDROXYPROGESTERONE ACE. [Concomitant]

REACTIONS (4)
  - AGITATION [None]
  - ANXIETY [None]
  - DRUG INTERACTION [None]
  - OBSESSIVE THOUGHTS [None]
